FAERS Safety Report 6637350-4 (Version None)
Quarter: 2010Q1

REPORT INFORMATION
  Report Type: 
  Country: None (occurrence: None)
  Receive Date: 20100316
  Receipt Date: 20100308
  Transmission Date: 20100710
  Serious: Yes (Hospitalization)
  Sender: FDA-Public Use
  Company Number: US-ROCHE-689867

PATIENT
  Age: 43 Year
  Sex: Male

DRUGS (10)
  1. OSELTAMIVIR PHOSPHATE [Suspect]
     Dosage: STARTED ON THE EVENING OF DAY 6
     Route: 048
  2. OSELTAMIVIR PHOSPHATE [Suspect]
     Dosage: STARTED ON DAY 10, AFTER ONSET OF FEVER DISCONTINUED ON DAY 49 AFTE ONSET OF FEVER
     Route: 048
  3. CEFEPIME [Concomitant]
  4. ACYCLOVIR [Concomitant]
  5. ENTECAVIR [Concomitant]
  6. NEUPOGEN [Concomitant]
  7. HEPARIN [Concomitant]
  8. PANTOPRAZOLE [Concomitant]
  9. DOCUSATE [Concomitant]
  10. SENNA [Concomitant]

REACTIONS (1)
  - NEUROTOXICITY [None]
